FAERS Safety Report 9129748 (Version 1)
Quarter: 2013Q1

REPORT INFORMATION
  Report Type: Spontaneous
  Country: US (occurrence: US)
  Receive Date: 20130228
  Receipt Date: 20130228
  Transmission Date: 20140127
  Serious: No
  Sender: FDA-Public Use
  Company Number: US-ROXANE LABORATORIES, INC.-2013-RO-00297RO

PATIENT
  Sex: Male

DRUGS (1)
  1. PREDNISONE [Suspect]

REACTIONS (1)
  - Tachycardia [Unknown]
